FAERS Safety Report 14856764 (Version 1)
Quarter: 2018Q2

REPORT INFORMATION
  Report Type: Spontaneous
  Country: US (occurrence: US)
  Receive Date: 20180507
  Receipt Date: 20180507
  Transmission Date: 20180711
  Serious: No
  Sender: FDA-Public Use
  Company Number: US-ROCHE-2073813

PATIENT
  Sex: Male

DRUGS (20)
  1. TYLENOL [Concomitant]
     Active Substance: ACETAMINOPHEN
  2. DICLOFENAC SODIUM. [Concomitant]
     Active Substance: DICLOFENAC SODIUM
  3. DOXYCYCLINE. [Concomitant]
     Active Substance: DOXYCYCLINE
  4. DUREZOL [Concomitant]
     Active Substance: DIFLUPREDNATE
  5. KETOCONAZOLE. [Concomitant]
     Active Substance: KETOCONAZOLE
  6. ESBRIET [Suspect]
     Active Substance: PIRFENIDONE
     Dosage: 2 TABLET TID; FOR 1 WEEK
     Route: 048
  7. MELOXICAM. [Concomitant]
     Active Substance: MELOXICAM
  8. OFLOXACIN. [Concomitant]
     Active Substance: OFLOXACIN
  9. PANTOPRAZOLE SODIUM. [Concomitant]
     Active Substance: PANTOPRAZOLE SODIUM
  10. VENTOLIN HFA [Concomitant]
     Active Substance: ALBUTEROL SULFATE
  11. HEPARIN SODIUM. [Concomitant]
     Active Substance: HEPARIN SODIUM
  12. ELMIRON [Concomitant]
     Active Substance: PENTOSAN POLYSULFATE SODIUM
  13. AZELASTINE HCL [Concomitant]
     Active Substance: AZELASTINE HYDROCHLORIDE
  14. MYRBETRIQ [Concomitant]
     Active Substance: MIRABEGRON
  15. SYMBICORT [Concomitant]
     Active Substance: BUDESONIDE\FORMOTEROL FUMARATE DIHYDRATE
  16. ESBRIET [Suspect]
     Active Substance: PIRFENIDONE
     Indication: IDIOPATHIC PULMONARY FIBROSIS
     Dosage: 1 TABLET TID; FOR 1 WEEK
     Route: 048
  17. FLUTICASONE PROPIONATE. [Concomitant]
     Active Substance: FLUTICASONE PROPIONATE
  18. ESBRIET [Suspect]
     Active Substance: PIRFENIDONE
     Dosage: 3 TABLET TID;
     Route: 048
  19. BACLOFEN. [Concomitant]
     Active Substance: BACLOFEN
  20. BACTRIM [Concomitant]
     Active Substance: SULFAMETHOXAZOLE\TRIMETHOPRIM
     Route: 065

REACTIONS (2)
  - Headache [Not Recovered/Not Resolved]
  - Chest pain [Not Recovered/Not Resolved]
